FAERS Safety Report 10381395 (Version 1)
Quarter: 2014Q3

REPORT INFORMATION
  Report Type: Spontaneous
  Country: JP (occurrence: JP)
  Receive Date: 20140813
  Receipt Date: 20140813
  Transmission Date: 20150326
  Serious: Yes (Hospitalization, Other)
  Sender: FDA-Public Use
  Company Number: JP-ACTAVIS-2014-17269

PATIENT
  Age: 61 Year
  Sex: Male

DRUGS (2)
  1. CLOPIDOGREL (UNKNOWN) [Suspect]
     Active Substance: CLOPIDOGREL BISULFATE
     Indication: CEREBRAL INFARCTION
     Dosage: 75 MG, UNKNOWN
     Route: 065
  2. ACETYLSALICYLIC ACID (UNKNOWN) [Suspect]
     Active Substance: ASPIRIN
     Indication: CEREBRAL INFARCTION
     Dosage: 100 MG, UNKNOWN
     Route: 065

REACTIONS (2)
  - Intraventricular haemorrhage [Recovered/Resolved]
  - Haemorrhagic cyst [Recovered/Resolved]
